FAERS Safety Report 9659917 (Version 1)
Quarter: 2013Q4

REPORT INFORMATION
  Report Type: Spontaneous
  Country: IT (occurrence: FR)
  Receive Date: 20131031
  Receipt Date: 20131031
  Transmission Date: 20140711
  Serious: Yes (Hospitalization)
  Sender: FDA-Public Use
  Company Number: FR-FRI-1000050560

PATIENT
  Age: 64 Year
  Sex: Male

DRUGS (11)
  1. NEBIVOLOL [Suspect]
     Dosage: 2.5 MG
     Route: 048
  2. RAMIPRIL [Concomitant]
     Dosage: 10 MG
     Route: 048
  3. LERCAN [Concomitant]
     Dosage: 20 MG
     Route: 048
  4. INEXIUM [Concomitant]
     Dosage: 20 MG
     Route: 048
  5. KEPPRA [Concomitant]
     Dosage: 1000 MG
     Route: 048
  6. URBANYL [Concomitant]
     Dosage: 10 MG
     Route: 048
  7. FORLAX [Concomitant]
     Route: 048
  8. AERIUS [Concomitant]
     Route: 048
  9. LOVENOX [Concomitant]
     Dosage: 0.4 ML
     Route: 058
  10. NOVOMIX [Concomitant]
     Dosage: 28 IU IN THE MORNING, 16 IU IN THE EVENING
     Route: 058
  11. BRONCHODILATATOR NOS [Concomitant]

REACTIONS (1)
  - Retroperitoneal fibrosis [Unknown]
